FAERS Safety Report 13147161 (Version 1)
Quarter: 2017Q1

REPORT INFORMATION
  Report Type: Spontaneous
  Country: US (occurrence: US)
  Receive Date: 20170124
  Receipt Date: 20170124
  Transmission Date: 20170428
  Serious: No
  Sender: FDA-Public Use
  Company Number: US-009507513-1701USA005999

PATIENT
  Age: 26 Year
  Sex: Female
  Weight: 75.74 kg

DRUGS (1)
  1. NEXPLANON [Suspect]
     Active Substance: ETONOGESTREL
     Indication: CONTRACEPTION
     Dosage: ONE SINGLE ROD
     Route: 059
     Dates: start: 20160916, end: 20170109

REACTIONS (2)
  - Device expulsion [Recovered/Resolved]
  - Implant site pruritus [Unknown]

NARRATIVE: CASE EVENT DATE: 20170106
